FAERS Safety Report 25216591 (Version 1)
Quarter: 2025Q2

REPORT INFORMATION
  Report Type: Spontaneous
  Country: FR (occurrence: FR)
  Receive Date: 20250419
  Receipt Date: 20250419
  Transmission Date: 20250716
  Serious: Yes (Death)
  Sender: ACCORD
  Company Number: None

PATIENT
  Age: 74 Year
  Sex: Female
  Weight: 45 kg

DRUGS (8)
  1. CAPECITABINE [Suspect]
     Active Substance: CAPECITABINE
     Indication: Breast cancer
     Dates: start: 20241111, end: 20250112
  2. VESICARE [Suspect]
     Active Substance: SOLIFENACIN SUCCINATE
     Indication: Urinary tract disorder
     Dosage: STRENGTH: 5 MG
     Dates: start: 20250218, end: 20250224
  3. XGEVA [Suspect]
     Active Substance: DENOSUMAB
     Indication: Prophylaxis
     Dosage: STRENGTH: 120 MG
  4. EVEROLIMUS [Concomitant]
     Active Substance: EVEROLIMUS
     Dates: start: 20220906, end: 202409
  5. BACTRIM [Concomitant]
     Active Substance: SULFAMETHOXAZOLE\TRIMETHOPRIM
     Dates: start: 20250205, end: 20250220
  6. FULVESTRANT [Concomitant]
     Active Substance: FULVESTRANT
     Dates: start: 20220906, end: 20221010
  7. FULVESTRANT [Concomitant]
     Active Substance: FULVESTRANT
     Dates: start: 20221020, end: 202411
  8. CAPECITABINE [Suspect]
     Active Substance: CAPECITABINE
     Indication: Breast cancer
     Dates: start: 20250113, end: 20250224

REACTIONS (1)
  - Ischaemic stroke [Fatal]

NARRATIVE: CASE EVENT DATE: 20250224
